FAERS Safety Report 9988835 (Version 1)
Quarter: 2013Q4

REPORT INFORMATION
  Report Type: Spontaneous
  Country: JP (occurrence: None)
  Receive Date: 20131022
  Receipt Date: 20131022
  Transmission Date: 20140711
  Serious: Yes (Hospitalization, Other)
  Sender: FDA-Public Use
  Company Number: VAL_01193_2012

PATIENT
  Age: 87 Year
  Sex: Female
  Weight: 34 kg

DRUGS (7)
  1. PARLODEL [Suspect]
     Indication: PARKINSONISM
     Route: 048
     Dates: end: 20120509
  2. MENESIT [Concomitant]
  3. SEVEN EP [Concomitant]
  4. BONOTEO [Concomitant]
  5. TAKEPRON [Concomitant]
  6. PLETAAL [Concomitant]
  7. ASPIRIN [Concomitant]

REACTIONS (10)
  - Loss of consciousness [None]
  - Blood pressure decreased [None]
  - Cogwheel rigidity [None]
  - Cardiomegaly [None]
  - Hypotension [None]
  - Tachycardia [None]
  - Aortic valve incompetence [None]
  - Mitral valve incompetence [None]
  - Pulmonary valve incompetence [None]
  - Tricuspid valve incompetence [None]
